FAERS Safety Report 8070816-1 (Version None)
Quarter: 2012Q1

REPORT INFORMATION
  Report Type: 
  Country: None (occurrence: None)
  Receive Date: 20120125
  Receipt Date: 20120119
  Transmission Date: 20120608
  Serious: Yes (Hospitalization)
  Sender: FDA-Public Use
  Company Number: US-GLAXOSMITHKLINE-A0932120B

PATIENT
  Age: 80 Year
  Sex: Male
  Weight: 50.5 kg

DRUGS (2)
  1. PACLITAXEL [Suspect]
     Indication: THYROID CANCER
     Dosage: 80MGM2 CYCLIC
     Route: 042
     Dates: start: 20110211
  2. VOTRIENT [Suspect]
     Indication: THYROID CANCER
     Dosage: 800MG PER DAY
     Route: 048
     Dates: start: 20110211

REACTIONS (3)
  - LYMPHOCYTE COUNT DECREASED [None]
  - HYPOCALCAEMIA [None]
  - SYNCOPE [None]
